FAERS Safety Report 12368486 (Version 1)
Quarter: 2016Q2

REPORT INFORMATION
  Report Type: Spontaneous
  Country: US (occurrence: US)
  Receive Date: 20160513
  Receipt Date: 20160513
  Transmission Date: 20160815
  Serious: No
  Sender: FDA-Public Use
  Company Number: US-PFIZER INC-2016240345

PATIENT
  Age: 8 Year
  Sex: Male

DRUGS (1)
  1. QUILLIVANT XR [Suspect]
     Active Substance: METHYLPHENIDATE HYDROCHLORIDE
     Indication: ATTENTION DEFICIT/HYPERACTIVITY DISORDER
     Dosage: 5 ML, 1X/DAY (5 ML EVERY MORNING ONCE A DAY ORAL SUSPENSION, ADMINISTERED THROUGH A SYRINGE)
     Route: 048
     Dates: end: 2016

REACTIONS (3)
  - Abnormal behaviour [Recovering/Resolving]
  - Psychiatric symptom [Recovering/Resolving]
  - Antisocial behaviour [Recovering/Resolving]

NARRATIVE: CASE EVENT DATE: 2016
